FAERS Safety Report 6648981-X (Version None)
Quarter: 2010Q1

REPORT INFORMATION
  Report Type: 
  Country: None (occurrence: None)
  Receive Date: 20100324
  Receipt Date: 20100315
  Transmission Date: 20100710
  Serious: Yes (Other)
  Sender: FDA-Public Use
  Company Number: GXKR2010US03074

PATIENT
  Age: 44 Year
  Sex: Female

DRUGS (18)
  1. FENTANYL CITRATE [Suspect]
     Indication: INDUCTION OF ANAESTHESIA
     Dosage: 100 UG, UNK
     Route: 042
  2. FENTANYL CITRATE [Suspect]
     Dosage: 250 UG, UNK
     Route: 042
  3. ONDANSETRON [Suspect]
     Indication: PROPHYLAXIS
     Dosage: 4 MG, UNK
     Route: 042
  4. QUETIAPINE (NGX) [Suspect]
     Route: 065
  5. DULOXETINE HYDROCHLORIDE [Suspect]
     Route: 065
  6. LITHIUM [Suspect]
     Route: 065
  7. LAMOTRIGINE [Concomitant]
  8. CLONAZEPAM [Concomitant]
  9. TOPIRAMATE [Concomitant]
  10. MIDAZOLAM HCL [Concomitant]
     Dosage: 5 MG, UNK
     Route: 042
  11. PROPOFOL [Concomitant]
     Dosage: 120 MG, UNK
  12. ROCURONIUM BROMIDE [Concomitant]
     Dosage: 50 MG, UNK
  13. ROCURONIUM BROMIDE [Concomitant]
     Dosage: 20 MG, UNK
     Route: 040
  14. HYDROMORPHONE HCL [Concomitant]
     Dosage: 2 MG, UNK
  15. RINGER'S [Concomitant]
     Dosage: 2.9 L, UNK
  16. HEXTEND [Concomitant]
     Dosage: 0.5 L, UNK
  17. NEOSTIGMINE [Concomitant]
     Dosage: 5 MG, UNK
     Route: 042
  18. GLYCOPYRROLATE [Concomitant]
     Dosage: 0.7 MG, UNK

REACTIONS (6)
  - CLONUS [None]
  - HYPOKINESIA [None]
  - MUSCLE RIGIDITY [None]
  - NYSTAGMUS [None]
  - SEROTONIN SYNDROME [None]
  - UNRESPONSIVE TO STIMULI [None]
